FAERS Safety Report 24642821 (Version 1)
Quarter: 2024Q4

REPORT INFORMATION
  Report Type: Spontaneous
  Country: FR (occurrence: FR)
  Receive Date: 20241120
  Receipt Date: 20241120
  Transmission Date: 20250115
  Serious: Yes (Hospitalization)
  Sender: MYLAN
  Company Number: None

PATIENT
  Age: 55 Year
  Sex: Male

DRUGS (1)
  1. GEMCITABINE [Suspect]
     Active Substance: GEMCITABINE
     Indication: Lung adenocarcinoma
     Dosage: 1370 MILLIGRAM, Q21D
     Route: 042
     Dates: start: 20230717, end: 20240917

REACTIONS (4)
  - Pulmonary alveolar haemorrhage [Recovered/Resolved]
  - Haemoptysis [Recovered/Resolved]
  - Eosinophilia [Recovered/Resolved]
  - Respiratory failure [Recovered/Resolved]

NARRATIVE: CASE EVENT DATE: 20240601
